FAERS Safety Report 4962202-5 (Version None)
Quarter: 2006Q1

REPORT INFORMATION
  Report Type: 
  Country: None (occurrence: None)
  Receive Date: 20060329
  Receipt Date: 20060316
  Transmission Date: 20060701
  Serious: Yes (Hospitalization)
  Sender: FDA-Public Use
  Company Number: 200610988BWH

PATIENT
  Age: 59 Year
  Sex: Male
  Weight: 101.6057 kg

DRUGS (28)
  1. SORAFENIB [Suspect]
     Indication: MALIGNANT MELANOMA
     Dosage: 400 MG, BID, ORAL
     Route: 048
     Dates: start: 20060209, end: 20060213
  2. CARBOPLATIN [Suspect]
     Dosage: ONCE, INTRAVENOUS
     Route: 042
     Dates: start: 20060208
  3. TAXOL [Suspect]
     Dosage: 511 MG, TOTAL DAILY, ORAL
     Route: 048
     Dates: start: 20060208
  4. NOVOLOG [Concomitant]
  5. HUMULIN N [Concomitant]
  6. METFORMIN [Concomitant]
  7. GLYBURIDE [Concomitant]
  8. METHADONE [Concomitant]
  9. GABAPENTIN [Concomitant]
  10. AMITRIPTYLINE HCL [Concomitant]
  11. TRIXAICIN CREAM [Concomitant]
  12. CARDIZEM [Concomitant]
  13. FUROSEMIDE [Concomitant]
  14. POTASSIUM [Concomitant]
  15. PYRIDOXINE HCL [Concomitant]
  16. PLAVIX [Concomitant]
  17. PENTOXIFYLLINE [Concomitant]
  18. ASPIRIN [Concomitant]
  19. LEVOTHYROXINE SODIUM [Concomitant]
  20. COZAAR [Concomitant]
  21. LEXAPRO [Concomitant]
  22. CLONAZEPAM [Concomitant]
  23. TERAZOSIN [Concomitant]
  24. NASONEX [Concomitant]
  25. SIMVASTATIN [Concomitant]
  26. DEXAMETHASONE [Concomitant]
  27. ZOFRAN [Concomitant]
  28. PEPCID AC [Concomitant]

REACTIONS (18)
  - ANOREXIA [None]
  - CANDIDIASIS [None]
  - CHILLS [None]
  - DEHYDRATION [None]
  - DIARRHOEA [None]
  - HAEMATOCRIT DECREASED [None]
  - HAEMOGLOBIN DECREASED [None]
  - HYPOTENSION [None]
  - MALIGNANT MELANOMA [None]
  - NAUSEA [None]
  - NECK MASS [None]
  - NEUTROPENIA [None]
  - ORAL INTAKE REDUCED [None]
  - ORTHOSTATIC HYPOTENSION [None]
  - PAIN [None]
  - PLATELET COUNT DECREASED [None]
  - VOMITING [None]
  - WHITE BLOOD CELL COUNT DECREASED [None]
